FAERS Safety Report 22607365 (Version 5)
Quarter: 2023Q4

REPORT INFORMATION
  Report Type: Spontaneous
  Country: CA (occurrence: CA)
  Receive Date: 20230616
  Receipt Date: 20231206
  Transmission Date: 20240109
  Serious: Yes (Other)
  Sender: FDA-Public Use
  Company Number: CA-CELLTRION INC.-2022CA020601

PATIENT

DRUGS (4)
  1. INFLECTRA [Suspect]
     Active Substance: INFLIXIMAB-DYYB
     Indication: Crohn^s disease
     Dosage: 5 MG/KG, EVERY 5 WEEK ( W 0, W 2, W 6 THEN Q 5 WEEKS)
     Route: 042
     Dates: start: 20230124
  2. INFLECTRA [Suspect]
     Active Substance: INFLIXIMAB-DYYB
     Dosage: 385 MG, (5MG/KG), Q5 WEEKS
     Route: 042
     Dates: start: 20230607
  3. INFLECTRA [Suspect]
     Active Substance: INFLIXIMAB-DYYB
     Dosage: 395 MG, AFTER 5 WEEKS
     Route: 042
     Dates: start: 20230712
  4. INFLECTRA [Suspect]
     Active Substance: INFLIXIMAB-DYYB
     Dosage: 400 MG, AFTER 5 WEEKS
     Route: 042
     Dates: start: 20231024

REACTIONS (9)
  - Basal cell carcinoma [Recovering/Resolving]
  - Breast abscess [Recovering/Resolving]
  - Upper respiratory tract infection [Recovering/Resolving]
  - Breast mass [Recovering/Resolving]
  - Fistula [Unknown]
  - Fibroadenoma of breast [Unknown]
  - Off label use [Unknown]
  - Off label use [Unknown]
  - Intentional product use issue [Unknown]

NARRATIVE: CASE EVENT DATE: 20230101
